FAERS Safety Report 8941497 (Version 1)
Quarter: 2012Q4

REPORT INFORMATION
  Report Type: 
  Country: GB (occurrence: GB)
  Receive Date: 20121203
  Receipt Date: 20121203
  Transmission Date: 20130627
  Serious: Yes (Hospitalization, Other)
  Sender: FDA-Public Use
  Company Number: GB-ROCHE-1158652

PATIENT
  Age: 68 Year

DRUGS (3)
  1. ZELBORAF [Suspect]
     Indication: METASTATIC MALIGNANT MELANOMA
     Route: 065
     Dates: start: 20120725, end: 20120807
  2. ZELBORAF [Suspect]
     Route: 065
     Dates: start: 20120810, end: 20121107
  3. ZELBORAF [Suspect]
     Route: 065

REACTIONS (14)
  - Cardiac failure [Unknown]
  - Dyspnoea [Unknown]
  - Cardiomyopathy [Unknown]
  - Mucosal inflammation [Unknown]
  - Dehydration [Unknown]
  - Renal function test abnormal [Unknown]
  - Pneumonia [Unknown]
  - Left ventricular dysfunction [Unknown]
  - Lower respiratory tract infection [Unknown]
  - Poor quality sleep [Unknown]
  - Orthopnoea [Unknown]
  - Productive cough [Unknown]
  - Decreased appetite [Unknown]
  - Asthenia [Unknown]
